FAERS Safety Report 13707488 (Version 1)
Quarter: 2017Q2

REPORT INFORMATION
  Report Type: Spontaneous
  Country: US (occurrence: US)
  Receive Date: 20170630
  Receipt Date: 20170630
  Transmission Date: 20170830
  Serious: No
  Sender: FDA-Public Use
  Company Number: US-BAYER-2017-123301

PATIENT
  Age: 82 Year
  Sex: Female

DRUGS (3)
  1. MIDOL COMPLETE [Suspect]
     Active Substance: ACETAMINOPHEN\CAFFEINE\PYRILAMINE MALEATE
     Dosage: 2 DF, UNK
     Route: 048
  2. BAYER LOW DOSE [Suspect]
     Active Substance: ASPIRIN
     Dosage: UNK
  3. ALEVE [Suspect]
     Active Substance: NAPROXEN SODIUM
     Dosage: UNK UNK, Q4HR

REACTIONS (4)
  - Drug effect incomplete [Unknown]
  - Menstruation delayed [Unknown]
  - Drug ineffective [Unknown]
  - Incorrect dosage administered [Unknown]
